FAERS Safety Report 11958715 (Version 1)
Quarter: 2016Q1

REPORT INFORMATION
  Report Type: Report from Study
  Country: US (occurrence: US)
  Receive Date: 20160126
  Receipt Date: 20160126
  Transmission Date: 20160526
  Serious: No
  Sender: FDA-Public Use
  Company Number: US-ABBVIE-15K-163-1373007-00

PATIENT
  Sex: Male

DRUGS (5)
  1. PREDNISONE. [Suspect]
     Active Substance: PREDNISONE
     Route: 065
  2. HUMIRA [Suspect]
     Active Substance: ADALIMUMAB
     Indication: RHEUMATOID ARTHRITIS
     Route: 065
     Dates: start: 20140331, end: 201502
  3. PREDNISONE. [Suspect]
     Active Substance: PREDNISONE
     Dosage: FOR TWO DAYS
     Route: 065
  4. INSULIN [Concomitant]
     Active Substance: INSULIN NOS
     Indication: PRODUCT USED FOR UNKNOWN INDICATION
  5. PREDNISONE. [Suspect]
     Active Substance: PREDNISONE
     Indication: GOUT
     Dosage: FOR TWO DAYS
     Route: 065

REACTIONS (6)
  - Pneumonia [Recovered/Resolved]
  - Injection site pain [Unknown]
  - Gastroenteritis viral [Recovered/Resolved]
  - Blood glucose abnormal [Unknown]
  - Influenza [Recovered/Resolved]
  - Gout [Not Recovered/Not Resolved]
